FAERS Safety Report 18762136 (Version 1)
Quarter: 2021Q1

REPORT INFORMATION
  Report Type: Spontaneous
  Country: VE (occurrence: VE)
  Receive Date: 20210120
  Receipt Date: 20210120
  Transmission Date: 20210419
  Serious: Yes (Hospitalization, Other)
  Sender: FDA-Public Use
  Company Number: NVSC2021VE009091

PATIENT
  Sex: Male

DRUGS (1)
  1. GLIVEC [Suspect]
     Active Substance: IMATINIB MESYLATE
     Indication: CHRONIC MYELOID LEUKAEMIA
     Dosage: 400 MG (4 OF 100 MG)
     Route: 048

REACTIONS (6)
  - Tracheal injury [Unknown]
  - Tracheal inflammation [Not Recovered/Not Resolved]
  - Catheter site haemorrhage [Unknown]
  - Accident [Unknown]
  - Loss of consciousness [Unknown]
  - Catheter site pain [Unknown]
